FAERS Safety Report 24828224 (Version 1)
Quarter: 2025Q1

REPORT INFORMATION
  Report Type: Spontaneous
  Country: CN (occurrence: CN)
  Receive Date: 20250109
  Receipt Date: 20250109
  Transmission Date: 20250408
  Serious: Yes (Hospitalization)
  Sender: BEIGENE
  Company Number: CN-BEIGENE-BGN-2025-000126

PATIENT

DRUGS (8)
  1. TISLELIZUMAB [Suspect]
     Active Substance: TISLELIZUMAB
     Indication: Oesophageal carcinoma
     Route: 041
     Dates: start: 20241130
  2. CISPLATIN [Suspect]
     Active Substance: CISPLATIN
     Indication: Oesophageal carcinoma
     Route: 041
     Dates: start: 20241130
  3. PACLITAXEL [Suspect]
     Active Substance: PACLITAXEL
     Indication: Oesophageal carcinoma
     Route: 041
     Dates: start: 20241130
  4. PACLITAXEL [Suspect]
     Active Substance: PACLITAXEL
     Route: 041
     Dates: start: 20241207
  5. SODIUM CHLORIDE [Concomitant]
     Active Substance: SODIUM CHLORIDE
     Indication: Vehicle solution use
     Route: 041
     Dates: start: 20241130
  6. SODIUM CHLORIDE [Concomitant]
     Active Substance: SODIUM CHLORIDE
     Route: 041
     Dates: start: 20241130
  7. SODIUM CHLORIDE [Concomitant]
     Active Substance: SODIUM CHLORIDE
     Route: 041
     Dates: start: 20241207
  8. DEXTROSE [Concomitant]
     Active Substance: DEXTROSE MONOHYDRATE
     Indication: Vehicle solution use
     Route: 041
     Dates: start: 20241130

REACTIONS (1)
  - Myelosuppression [Recovering/Resolving]

NARRATIVE: CASE EVENT DATE: 20241219
